FAERS Safety Report 4788224-5 (Version None)
Quarter: 2005Q4

REPORT INFORMATION
  Report Type: 
  Country: None (occurrence: None)
  Receive Date: 20051003
  Receipt Date: 20050915
  Transmission Date: 20060501
  Serious: Yes (Hospitalization)
  Sender: FDA-Public Use
  Company Number: 217071

PATIENT
  Age: 65 Year
  Sex: Male
  Weight: 74 kg

DRUGS (8)
  1. BEVACIZUMAB OR PLACEBO (BEVACIZUMAB OR PLACEBO) PWDR + SOLVENT, INFUSI [Suspect]
     Indication: NON-SMALL CELL LUNG CANCER
     Dosage: 15 MG/KG, Q3W, INTRAVENOUS
     Route: 042
     Dates: start: 20050622
  2. CISPLATIN [Suspect]
     Indication: NON-SMALL CELL LUNG CANCER
     Dosage: 80 MG/M2, Q3W; INTRAVENOUS
     Route: 042
     Dates: start: 20050622
  3. GEMCITABINE (GEMCITABINE HYDROCHLORIDE) [Suspect]
     Indication: NON-SMALL CELL LUNG CANCER
     Dosage: 1250 MG/M2, INTRAVENOUS
     Route: 042
     Dates: start: 20050622
  4. DOCUSATE SODIUM [Concomitant]
  5. PROCHLORPERAZINE [Concomitant]
  6. SENOKOT [Concomitant]
  7. ZANTAC [Concomitant]
  8. KCL (POTASSIUM CHLORIDE) [Concomitant]

REACTIONS (12)
  - ASTHENIA [None]
  - COLITIS [None]
  - HYPOKALAEMIA [None]
  - ILEUS [None]
  - LEUKOCYTOSIS [None]
  - NAUSEA [None]
  - PNEUMOTHORAX [None]
  - PULMONARY CAVITATION [None]
  - SUBCUTANEOUS EMPHYSEMA [None]
  - TUMOUR LYSIS SYNDROME [None]
  - TUMOUR NECROSIS [None]
  - VOMITING [None]
